FAERS Safety Report 4989253-9 (Version None)
Quarter: 2006Q2

REPORT INFORMATION
  Report Type: 
  Country: None (occurrence: None)
  Receive Date: 20060425
  Receipt Date: 20060410
  Transmission Date: 20061013
  Serious: Yes (Other)
  Sender: FDA-Public Use
  Company Number: 2006039447

PATIENT
  Age: 79 Year
  Sex: Male
  Weight: 90.7194 kg

DRUGS (9)
  1. VIAGRA [Suspect]
     Indication: ERECTILE DYSFUNCTION
     Dosage: 50 MG
  2. GLUCOTROL [Suspect]
     Indication: DIABETES MELLITUS
  3. LEVITRA [Suspect]
     Indication: ILL-DEFINED DISORDER
  4. ZOCOR [Concomitant]
  5. CARDURA [Concomitant]
  6. TYLENOL W/ CODEINE NO. 3 [Concomitant]
  7. XANAX [Concomitant]
  8. NAPROXEN [Concomitant]
  9. DRUGS FOR TREATMENT OF BONE DISEASES [Concomitant]

REACTIONS (2)
  - BLOOD GLUCOSE INCREASED [None]
  - VISION BLURRED [None]
